FAERS Safety Report 6715244-3 (Version None)
Quarter: 2010Q2

REPORT INFORMATION
  Report Type: 
  Country: None (occurrence: None)
  Receive Date: 20100507
  Receipt Date: 20100504
  Transmission Date: 20101027
  Serious: Yes (Death)
  Sender: FDA-Public Use
  Company Number: US-JNJFOC-20100101267

PATIENT
  Sex: Female
  Weight: 57.15 kg

DRUGS (6)
  1. TYLENOL (CAPLET) [Suspect]
     Route: 048
  2. TYLENOL (CAPLET) [Suspect]
     Indication: ARTHRALGIA
     Dosage: ^AS DIRECTED^
     Route: 048
  3. FERREX [Concomitant]
     Route: 048
  4. AVALIDE [Concomitant]
  5. DILTIAZEM HCL [Concomitant]
  6. SIMVASTATIN [Concomitant]
     Indication: BLOOD CHOLESTEROL INCREASED
     Route: 048

REACTIONS (2)
  - DEATH [None]
  - PRODUCT QUALITY ISSUE [None]
